FAERS Safety Report 5456801-4 (Version None)
Quarter: 2007Q3

REPORT INFORMATION
  Report Type: 
  Country: None (occurrence: None)
  Receive Date: 20070918
  Receipt Date: 20070430
  Transmission Date: 20080115
  Serious: No
  Sender: FDA-Public Use
  Company Number: US-ASTRAZENECA-2006UW26134

PATIENT
  Sex: Female
  Weight: 88.6 kg

DRUGS (9)
  1. SEROQUEL [Suspect]
     Indication: BIPOLAR DISORDER
     Route: 048
     Dates: start: 19980101, end: 20060101
  2. SEROQUEL [Suspect]
     Indication: SLEEP DISORDER
     Route: 048
     Dates: start: 19980101, end: 20060101
  3. HALDOL [Concomitant]
     Dates: start: 20050101
  4. RISPERDAL [Concomitant]
     Dates: start: 20050101
  5. ZYPREXA [Concomitant]
     Dates: start: 20050101
  6. DEPAKOTE [Concomitant]
  7. ZOLOFT [Concomitant]
  8. TRAZODONE HCL [Concomitant]
  9. TRILEPTAL [Concomitant]

REACTIONS (8)
  - DIABETES MELLITUS [None]
  - GESTATIONAL DIABETES [None]
  - GLYCOSURIA [None]
  - HYPERGLYCAEMIA [None]
  - HYPERLIPIDAEMIA [None]
  - OBESITY [None]
  - OVERDOSE [None]
  - SCHIZOPHRENIA [None]
